FAERS Safety Report 10026630 (Version 2)
Quarter: 2014Q1

REPORT INFORMATION
  Report Type: Spontaneous
  Country: US (occurrence: US)
  Receive Date: 20140321
  Receipt Date: 20140328
  Transmission Date: 20141002
  Serious: Yes (Hospitalization, Other)
  Sender: FDA-Public Use
  Company Number: US-UCBSA-114618

PATIENT
  Age: 22 Year
  Sex: Female
  Weight: 68.9 kg

DRUGS (2)
  1. CIMZIA [Suspect]
     Indication: CROHN^S DISEASE
     Route: 058
     Dates: start: 20140203, end: 201402
  2. PREDNISONE [Concomitant]
     Dosage: DAILY DOSE: 10 MG

REACTIONS (2)
  - Anaphylactic shock [Recovered/Resolved]
  - Feeling abnormal [Unknown]
